FAERS Safety Report 10687614 (Version 1)
Quarter: 2014Q4

REPORT INFORMATION
  Report Type: Spontaneous
  Country: JP (occurrence: None)
  Receive Date: 20141230
  Receipt Date: 20141230
  Transmission Date: 20150529
  Serious: Yes (Hospitalization, Other)
  Sender: FDA-Public Use
  Company Number: JP-2014VAL000662

PATIENT
  Age: 25 Year
  Sex: Female

DRUGS (1)
  1. CARBAMAZEPINE (CARBAMAZEPINE) UNKOWN [Suspect]
     Active Substance: CARBAMAZEPINE
     Indication: EPILEPSY

REACTIONS (7)
  - Hypogammaglobulinaemia [None]
  - Alanine aminotransferase [None]
  - Aspartate aminotransferase [None]
  - Drug reaction with eosinophilia and systemic symptoms [None]
  - Mycoplasma infection [None]
  - Pyrexia [None]
  - Cough [None]
